FAERS Safety Report 7071753-1 (Version None)
Quarter: 2010Q4

REPORT INFORMATION
  Report Type: 
  Country: None (occurrence: None)
  Receive Date: 20101029
  Receipt Date: 20091015
  Transmission Date: 20110411
  Serious: No
  Sender: FDA-Public Use
  Company Number: A0811993A

PATIENT
  Age: 76 Year
  Sex: Female

DRUGS (4)
  1. ADVAIR DISKUS 100/50 [Suspect]
     Indication: ASTHMA
     Dosage: 1PUFF TWICE PER DAY
     Route: 055
     Dates: start: 20091001
  2. LEVOTHYROXINE [Concomitant]
  3. BENADRYL [Concomitant]
  4. BUFFERIN [Concomitant]

REACTIONS (3)
  - GLOSSODYNIA [None]
  - ORAL PAIN [None]
  - OROPHARYNGEAL PAIN [None]
